FAERS Safety Report 5075147-X (Version None)
Quarter: 2006Q3

REPORT INFORMATION
  Report Type: 
  Country: None (occurrence: None)
  Receive Date: 20060809
  Receipt Date: 20060731
  Transmission Date: 20061208
  Serious: Yes (Other)
  Sender: FDA-Public Use
  Company Number: PHBS2006JP11519

PATIENT
  Age: 1 Year

DRUGS (1)
  1. ZADITEN [Suspect]
     Route: 048
     Dates: start: 20051119

REACTIONS (1)
  - MENTAL RETARDATION SEVERITY UNSPECIFIED [None]
